FAERS Safety Report 16922765 (Version 1)
Quarter: 2019Q4

REPORT INFORMATION
  Report Type: Spontaneous
  Country: US (occurrence: US)
  Receive Date: 20191016
  Receipt Date: 20191016
  Transmission Date: 20200122
  Serious: No
  Sender: FDA-Public Use
  Company Number: US-JNJFOC-20191018302

PATIENT
  Sex: Female
  Weight: 52.21 kg

DRUGS (4)
  1. MYFORTIC [Concomitant]
     Active Substance: MYCOPHENOLATE SODIUM
     Indication: PRODUCT USED FOR UNKNOWN INDICATION
     Dosage: THE LAST ADMINISTRATION DATE ON 11/OCT/2019 (IN THE MORNING)
     Route: 065
     Dates: start: 201908
  2. WOMENS ROGAINE UNSCENTED [Suspect]
     Active Substance: MINOXIDIL
     Indication: ALOPECIA
     Dosage: HALF A CAPFUL?THE LAST PRODUCT ADMINISTRATION DATE WAS 08/OCT/2019.
     Route: 061
     Dates: start: 20190912
  3. PREDNISONE. [Concomitant]
     Active Substance: PREDNISONE
     Indication: PRODUCT USED FOR UNKNOWN INDICATION
     Dosage: THE LAST ADMINISTRATION DATE 11/OCT/2019 (IN THE MORNING)
     Route: 065
     Dates: start: 20190322
  4. PROGRAF [Concomitant]
     Active Substance: TACROLIMUS
     Indication: PRODUCT USED FOR UNKNOWN INDICATION
     Dosage: USED FOR LAST TIME ON 11-OCT-2019
     Route: 065
     Dates: start: 20190322

REACTIONS (1)
  - Alopecia [Not Recovered/Not Resolved]
